FAERS Safety Report 23102622 (Version 1)
Quarter: 2023Q4

REPORT INFORMATION
  Report Type: Spontaneous
  Country: US (occurrence: US)
  Receive Date: 20231025
  Receipt Date: 20231025
  Transmission Date: 20240109
  Serious: Yes (Life-Threatening, Hospitalization, Other)
  Sender: FDA-Public Use
  Company Number: US-drreddys-SPO/USA/23/0180282

PATIENT
  Age: 7 Decade
  Sex: Male

DRUGS (1)
  1. AMIODARONE HYDROCHLORIDE [Suspect]
     Active Substance: AMIODARONE HYDROCHLORIDE
     Indication: Product used for unknown indication
     Dosage: DISCONTINUATION OF THE MEDICATION FOUR MONTHS PRIOR TO PRESENTATION

REACTIONS (7)
  - Multiple organ dysfunction syndrome [Recovered/Resolved]
  - Tachyarrhythmia [Recovered/Resolved]
  - Arrhythmic storm [Recovered/Resolved]
  - Thyrotoxic crisis [Recovered/Resolved]
  - Cardiogenic shock [Recovered/Resolved]
  - Respiratory failure [Recovered/Resolved]
  - Hyperthyroidism [Recovered/Resolved]
